FAERS Safety Report 12755317 (Version 4)
Quarter: 2016Q4

REPORT INFORMATION
  Report Type: Spontaneous
  Country: US (occurrence: US)
  Receive Date: 20160916
  Receipt Date: 20161121
  Transmission Date: 20170207
  Serious: Yes (Other)
  Sender: FDA-Public Use
  Company Number: US-PERRIGO-16US020032

PATIENT
  Sex: Female

DRUGS (6)
  1. LICE SHAMPOO [Suspect]
     Active Substance: PIPERONYL BUTOXIDE\PYRETHRUM EXTRACT
     Indication: PROPHYLAXIS
     Dosage: ONE TREATMENT, SINGLE
     Route: 061
     Dates: start: 20160731, end: 20160731
  2. HYDROCHLOROTHIAZIDE. [Concomitant]
     Active Substance: HYDROCHLOROTHIAZIDE
     Indication: FLUID RETENTION
     Dosage: UNK
     Route: 065
     Dates: start: 2011
  3. FLUOXETINE [Concomitant]
     Active Substance: FLUOXETINE HYDROCHLORIDE
     Indication: PRODUCT USED FOR UNKNOWN INDICATION
     Dosage: UNK
     Route: 065
  4. HYDROCODONE [Concomitant]
     Active Substance: HYDROCODONE
     Indication: PRODUCT USED FOR UNKNOWN INDICATION
     Dosage: UNK
     Route: 065
  5. LOSARTAN. [Concomitant]
     Active Substance: LOSARTAN
     Indication: HYPERTENSION
     Dosage: 20 MG, UNK
     Route: 065
     Dates: start: 2013
  6. TOPIRAMATE. [Concomitant]
     Active Substance: TOPIRAMATE
     Indication: MIGRAINE
     Dosage: UNK
     Route: 065
     Dates: start: 2011

REACTIONS (17)
  - Blindness transient [Recovered/Resolved]
  - Chemical eye injury [Recovering/Resolving]
  - Eye swelling [Recovering/Resolving]
  - Eye irritation [Recovered/Resolved]
  - Eye ulcer [Recovering/Resolving]
  - Photophobia [Unknown]
  - Visual impairment [Unknown]
  - Chemical burns of eye [Unknown]
  - Eye pain [Recovered/Resolved]
  - Laceration [Recovering/Resolving]
  - Eyelid oedema [Recovered/Resolved]
  - Vision blurred [Recovering/Resolving]
  - Lacrimation increased [Unknown]
  - Off label use [Recovered/Resolved]
  - Photophobia [Recovering/Resolving]
  - Accidental exposure to product [Recovered/Resolved]
  - Headache [Unknown]

NARRATIVE: CASE EVENT DATE: 20160731
